FAERS Safety Report 4639275-2 (Version None)
Quarter: 2005Q2

REPORT INFORMATION
  Report Type: 
  Country: None (occurrence: None)
  Receive Date: 20050418
  Receipt Date: 20050407
  Transmission Date: 20051028
  Serious: Yes (Hospitalization)
  Sender: FDA-Public Use
  Company Number: 04P-087-0256490-00

PATIENT
  Age: 55 Year
  Sex: Male

DRUGS (25)
  1. KALETRA [Suspect]
     Indication: HIV INFECTION
     Dosage: SEE IMAGE
     Route: 048
     Dates: start: 20020513, end: 20020715
  2. KALETRA [Suspect]
     Indication: HIV INFECTION
     Dosage: SEE IMAGE
     Route: 048
     Dates: start: 20030409, end: 20030409
  3. NORVIR [Suspect]
     Indication: HIV INFECTION
     Dosage: 600 MG, 1 IN 1 D, PER ORAL
     Route: 048
     Dates: start: 20010208, end: 20010311
  4. NORVIR [Suspect]
     Indication: HIV INFECTION
     Dosage: 600 MG, 1 IN 1 D, PER ORAL
     Route: 048
     Dates: start: 20010212, end: 20010322
  5. ZIDOVUDINE [Suspect]
     Indication: HIV INFECTION
     Dosage: 400 MG, 1 IN 1 D, PER ORAL
     Route: 048
     Dates: start: 20010208, end: 20010405
  6. ABACAVIR [Suspect]
     Indication: HIV INFECTION
     Dosage: 600 MG, 1 IN 1 D, PER ORAL
     Route: 048
     Dates: start: 20010406, end: 20030408
  7. NELFINAVIR MESILATE [Suspect]
     Indication: HIV INFECTION
     Dosage: PER ORAL
     Route: 048
     Dates: start: 20030425
  8. SAQUINAVIR [Suspect]
     Indication: HIV INFECTION
     Dosage: 800 MG, 1 IN 1 D, PER ORAL
     Route: 048
     Dates: start: 20010208, end: 20010322
  9. EFAVIRENZ [Suspect]
     Indication: HIV INFECTION
     Dosage: SEE IMAGE
     Route: 048
     Dates: start: 20010323, end: 20020512
  10. EFAVIRENZ [Suspect]
     Indication: HIV INFECTION
     Dosage: SEE IMAGE
     Route: 048
     Dates: start: 20030409, end: 20030409
  11. EFAVIRENZ [Suspect]
     Indication: HIV INFECTION
     Dosage: SEE IMAGE
     Route: 048
     Dates: start: 20030425
  12. BACTRIM [Suspect]
     Indication: INFECTION PROPHYLAXIS
     Dosage: SEE IMAGE
     Dates: start: 20001206, end: 20001211
  13. BACTRIM [Suspect]
     Indication: INFECTION PROPHYLAXIS
     Dosage: SEE IMAGE
     Dates: start: 20001212, end: 20010125
  14. BACTRIM [Suspect]
     Indication: INFECTION PROPHYLAXIS
     Dosage: SEE IMAGE
     Dates: start: 20010202, end: 20010406
  15. BACTRIM [Suspect]
     Indication: INFECTION PROPHYLAXIS
     Dosage: SEE IMAGE
     Dates: start: 20030403, end: 20030708
  16. VIREAD [Suspect]
     Indication: HIV INFECTION
     Dosage: 300 MG, 1 IN 1 D, PER ORAL
     Route: 048
     Dates: start: 20030409
  17. LAMIVUDINE [Concomitant]
  18. ABACAVIR SULFATE [Concomitant]
  19. DIDANOSINE [Concomitant]
  20. TENOFOVIR [Concomitant]
  21. CONCENTRATED GLYCERIN FRUCTOSE [Concomitant]
  22. GABEXATE MESILATE [Concomitant]
  23. NAFAMOSTAT MESILATE [Concomitant]
  24. DIGESTIVE ENZYME PREPARATIONS [Concomitant]
  25. BERIZYM [Concomitant]

REACTIONS (8)
  - ARRHYTHMIA [None]
  - BRADYCARDIA [None]
  - DIARRHOEA [None]
  - EXTRASYSTOLES [None]
  - NAUSEA [None]
  - RETINAL VEIN OCCLUSION [None]
  - VENTRICULAR EXTRASYSTOLES [None]
  - VOMITING [None]
